FAERS Safety Report 14797965 (Version 2)
Quarter: 2018Q2

REPORT INFORMATION
  Report Type: Spontaneous
  Country: US (occurrence: US)
  Receive Date: 20180424
  Receipt Date: 20180504
  Transmission Date: 20180711
  Serious: No
  Sender: FDA-Public Use
  Company Number: US-TEVA-2018-US-868042

PATIENT
  Sex: Female

DRUGS (1)
  1. HYDROCHLOROTHIAZIDE W/LOSARTAN [Suspect]
     Active Substance: HYDROCHLOROTHIAZIDE\LOSARTAN
     Dosage: 100MG/25MG/ ONCE DAILY

REACTIONS (3)
  - Hypertension [Unknown]
  - Feeling abnormal [Unknown]
  - Drug ineffective [Unknown]
